FAERS Safety Report 18571629 (Version 1)
Quarter: 2020Q4

REPORT INFORMATION
  Report Type: Spontaneous
  Country: US (occurrence: US)
  Receive Date: 20201202
  Receipt Date: 20201202
  Transmission Date: 20210114
  Serious: Yes (Hospitalization)
  Sender: FDA-Public Use
  Company Number: US-MYLANLABS-2020M1098992

PATIENT
  Age: 38 Year
  Sex: Male

DRUGS (4)
  1. ACETAMINOPHEN. [Concomitant]
     Active Substance: ACETAMINOPHEN
     Indication: ANALGESIC THERAPY
     Dosage: 1 GRAM, Q6H
     Route: 042
  2. KETAMINE [Suspect]
     Active Substance: KETAMINE
     Dosage: 1.7 MICROGRAM/KILOGRAM, QMINUTE, INFUSION
  3. KETOROLAC [Concomitant]
     Active Substance: KETOROLAC TROMETHAMINE
     Indication: ANALGESIC THERAPY
     Dosage: 30MG IV WAS GIVEN INTERMITTENTLY.
     Route: 042
  4. KETAMINE [Suspect]
     Active Substance: KETAMINE
     Indication: ANALGESIC THERAPY
     Dosage: 2.5 MICROGRAM/KILOGRAM, QMINUTE

REACTIONS (3)
  - Somnolence [Unknown]
  - Atelectasis [Recovering/Resolving]
  - Disorientation [Unknown]
